FAERS Safety Report 7854723-2 (Version None)
Quarter: 2011Q4

REPORT INFORMATION
  Report Type: 
  Country: None (occurrence: None)
  Receive Date: 20111026
  Receipt Date: 20110725
  Transmission Date: 20120403
  Serious: No
  Sender: FDA-Public Use
  Company Number: US-MUTUAL PHARMACEUTICAL COMPANY, INC.-CLCY20110090

PATIENT
  Sex: Female
  Weight: 61.29 kg

DRUGS (3)
  1. COLCRYS [Suspect]
     Indication: DRUG PRESCRIBING ERROR
     Route: 048
     Dates: start: 20110721, end: 20110721
  2. PROZAC [Concomitant]
     Indication: MIGRAINE
     Route: 048
  3. FLEXERIL [Concomitant]
     Indication: MUSCLE SPASMS
     Route: 048

REACTIONS (5)
  - FATIGUE [None]
  - ABDOMINAL PAIN [None]
  - DIARRHOEA [None]
  - NAUSEA [None]
  - DRUG PRESCRIBING ERROR [None]
